FAERS Safety Report 8628307 (Version 2)
Quarter: 2012Q4

REPORT INFORMATION
  Report Type: 
  Country: BR (occurrence: BR)
  Receive Date: 20120621
  Receipt Date: 20120829
  Transmission Date: 20130627
  Serious: Yes (Other)
  Sender: FDA-Public Use
  Company Number: PHHY2012BR051755

PATIENT
  Sex: Female

DRUGS (5)
  1. ANAFRANIL [Suspect]
     Indication: DEPRESSION
     Dosage: 75 mg, QD
  2. FORASEQ [Suspect]
     Indication: CHRONIC OBSTRUCTIVE PULMONARY DISEASE
     Dosage: 1 DF, BID
  3. SLOW K [Suspect]
     Indication: ELECTROLYTE SUBSTITUTION THERAPY
     Dosage: 1 DF, QID
     Route: 048
  4. NAPHAZOLINE [Suspect]
     Indication: NASAL CONGESTION
     Dosage: 1 DF, QD
  5. NEXIUM [Concomitant]
     Indication: DYSPEPSIA
     Dosage: 1 tablet a day
     Route: 048

REACTIONS (1)
  - Drug dependence [Unknown]
